FAERS Safety Report 16092003 (Version 1)
Quarter: 2019Q1

REPORT INFORMATION
  Report Type: Spontaneous
  Country: CN (occurrence: CN)
  Receive Date: 20190319
  Receipt Date: 20190319
  Transmission Date: 20190418
  Serious: Yes (Hospitalization, Other)
  Sender: FDA-Public Use
  Company Number: CN-PFM-2019-02830

PATIENT

DRUGS (2)
  1. VINORELBINE TARTRATE. [Suspect]
     Active Substance: VINORELBINE TARTRATE
     Indication: BREAST CANCER
     Dosage: 40 MG, D1, 8
     Route: 065
  2. PACLITAXEL. [Suspect]
     Active Substance: PACLITAXEL
     Indication: BREAST CANCER
     Dosage: 120 MG, D1, 8
     Route: 065

REACTIONS (5)
  - Intestinal obstruction [Recovering/Resolving]
  - Dysuria [Unknown]
  - Agranulocytosis [Recovered/Resolved]
  - Liver function test decreased [Unknown]
  - Hyponatraemia [Unknown]
